FAERS Safety Report 4751940-5 (Version None)
Quarter: 2005Q3

REPORT INFORMATION
  Report Type: 
  Country: None (occurrence: None)
  Receive Date: 20050822
  Receipt Date: 20050623
  Transmission Date: 20060218
  Serious: No
  Sender: FDA-Public Use
  Company Number: PHEH2005US07095

PATIENT
  Age: 80 Year
  Sex: Female

DRUGS (1)
  1. ZELNORM [Suspect]
     Indication: CONSTIPATION
     Dosage: 6 MG BID ORAL
     Route: 048
     Dates: start: 20050416

REACTIONS (3)
  - CONSTIPATION [None]
  - DIARRHOEA [None]
  - POLLAKIURIA [None]
